FAERS Safety Report 9099041 (Version 2)
Quarter: 2013Q1

REPORT INFORMATION
  Report Type: Spontaneous
  Country: US (occurrence: US)
  Receive Date: 20130214
  Receipt Date: 20130312
  Transmission Date: 20140127
  Serious: Yes (Hospitalization, Other)
  Sender: FDA-Public Use
  Company Number: US-SANOFI-AVENTIS-2013SA013186

PATIENT
  Age: 79 Year
  Sex: Male
  Weight: 83.91 kg

DRUGS (10)
  1. PLAVIX [Suspect]
     Indication: CEREBROVASCULAR ACCIDENT
     Route: 048
     Dates: start: 200310
  2. ARICEPT [Suspect]
     Route: 065
  3. ABILIFY [Suspect]
     Indication: DEMENTIA
     Route: 065
     Dates: start: 20130111
  4. DEPAKOTE [Suspect]
     Route: 065
  5. DEPAKOTE [Suspect]
     Route: 065
  6. ASPIRIN [Concomitant]
     Route: 065
  7. VALSARTAN [Concomitant]
     Route: 065
  8. ATORVASTATIN [Concomitant]
     Route: 065
  9. AVODART [Concomitant]
     Route: 065
  10. METOPROLOL [Concomitant]
     Route: 065

REACTIONS (9)
  - Aortic valve replacement [Unknown]
  - Delusion [Unknown]
  - Nervous system disorder [Unknown]
  - Dementia [Unknown]
  - Abnormal behaviour [Unknown]
  - Fatigue [Unknown]
  - Aggression [Unknown]
  - Somnolence [Unknown]
  - Lethargy [Unknown]
